FAERS Safety Report 16541651 (Version 3)
Quarter: 2020Q1

REPORT INFORMATION
  Report Type: Spontaneous
  Country: CA (occurrence: CA)
  Receive Date: 20190708
  Receipt Date: 20200113
  Transmission Date: 20200409
  Serious: Yes (Other)
  Sender: FDA-Public Use
  Company Number: CA-TEVA-2019-CA-1072013

PATIENT
  Sex: Male

DRUGS (13)
  1. ROSUVASTATIN. [Suspect]
     Active Substance: ROSUVASTATIN
     Indication: PRODUCT USED FOR UNKNOWN INDICATION
     Route: 065
  2. TORADOL [Suspect]
     Active Substance: KETOROLAC TROMETHAMINE
     Indication: INTERVERTEBRAL DISC PROTRUSION
     Route: 065
  3. OMEPRAZOLE MAGNESIUM DELAYED RELEASE TABLETS [Concomitant]
     Indication: PRODUCT USED FOR UNKNOWN INDICATION
     Route: 065
  4. JAKAVI [Suspect]
     Active Substance: RUXOLITINIB
     Indication: MYELOFIBROSIS
     Dosage: 30 MILLIGRAM DAILY;
     Route: 048
  5. ACETYLSALICYLIC ACID [Concomitant]
     Active Substance: ASPIRIN
     Indication: PRODUCT USED FOR UNKNOWN INDICATION
     Route: 065
  6. FENTANYL. [Concomitant]
     Active Substance: FENTANYL
     Indication: PRODUCT USED FOR UNKNOWN INDICATION
     Route: 065
  7. NITRATES [Concomitant]
     Active Substance: UNSPECIFIED INGREDIENT
     Indication: PRODUCT USED FOR UNKNOWN INDICATION
  8. ROSUVASTATIN. [Concomitant]
     Active Substance: ROSUVASTATIN
     Indication: PRODUCT USED FOR UNKNOWN INDICATION
     Route: 065
  9. DILAUDID [Suspect]
     Active Substance: HYDROMORPHONE HYDROCHLORIDE
     Indication: INTERVERTEBRAL DISC PROTRUSION
     Route: 065
  10. RAMIPRIL. [Concomitant]
     Active Substance: RAMIPRIL
     Indication: PRODUCT USED FOR UNKNOWN INDICATION
     Route: 065
  11. JAKAVI [Suspect]
     Active Substance: RUXOLITINIB
     Dosage: 2 DOSAGE FORMS DAILY;
     Route: 065
  12. JAKAVI [Suspect]
     Active Substance: RUXOLITINIB
     Dosage: 2 DOSAGE FORMS DAILY;
     Route: 048
  13. MORPHINE [Suspect]
     Active Substance: MORPHINE
     Indication: INTERVERTEBRAL DISC PROTRUSION
     Route: 065

REACTIONS (6)
  - Dyspnoea [Unknown]
  - Weight decreased [Unknown]
  - Abdominal discomfort [Unknown]
  - Intervertebral disc protrusion [Unknown]
  - Joint swelling [Unknown]
  - Oedema peripheral [Unknown]
